FAERS Safety Report 11980689 (Version 1)
Quarter: 2016Q1

REPORT INFORMATION
  Report Type: Spontaneous
  Country: NL (occurrence: NL)
  Receive Date: 20160129
  Receipt Date: 20160129
  Transmission Date: 20160526
  Serious: Yes (Other)
  Sender: FDA-Public Use
  Company Number: NL-WATSON-2016-01496

PATIENT
  Age: 70 Year
  Sex: Female

DRUGS (2)
  1. LIDOCAINE HYDROCHLORIDE AND EPINEPHRINE [Suspect]
     Active Substance: EPINEPHRINE\EPINEPHRINE BITARTRATE\LIDOCAINE HYDROCHLORIDE\LIDOCAINE HYDROCHLORIDE ANHYDROUS
     Indication: LOCAL ANAESTHESIA
     Dosage: 1:100,000 SOLUTION
     Route: 050
  2. ACETYLSALICYLIC ACID [Concomitant]
     Active Substance: ASPIRIN
     Indication: ISCHAEMIC CEREBRAL INFARCTION
     Dosage: UNK
     Route: 065

REACTIONS (1)
  - Extremity necrosis [Recovering/Resolving]
